FAERS Safety Report 17247460 (Version 1)
Quarter: 2020Q1

REPORT INFORMATION
  Report Type: Spontaneous
  Country: DK (occurrence: DK)
  Receive Date: 20200108
  Receipt Date: 20200108
  Transmission Date: 20200409
  Serious: Yes (Disabling)
  Sender: FDA-Public Use
  Company Number: DK-BAUSCH-BL-2019-066885

PATIENT
  Age: 82 Year
  Sex: Male
  Weight: 61 kg

DRUGS (2)
  1. DORZOLAMIDE AND TIMOLOL [Suspect]
     Active Substance: DORZOLAMIDE\TIMOLOL
     Indication: GLAUCOMA
     Dosage: 20 PLUS 5 MG/ML.
     Route: 050
     Dates: start: 20130627, end: 20191203
  2. LUMIGAN [Concomitant]
     Active Substance: BIMATOPROST
     Indication: GLAUCOMA
     Dosage: 1 X DAILY IN EACH EYE IN THE EVENING
     Route: 050
     Dates: start: 20171121

REACTIONS (1)
  - Hallucination [Recovering/Resolving]

NARRATIVE: CASE EVENT DATE: 2016
